FAERS Safety Report 4737123-3 (Version None)
Quarter: 2005Q3

REPORT INFORMATION
  Report Type: 
  Country: None (occurrence: None)
  Receive Date: 20050728
  Receipt Date: 20050609
  Transmission Date: 20060218
  Serious: No
  Sender: FDA-Public Use
  Company Number: 200514898US

PATIENT
  Age: 46 Year
  Sex: Male
  Weight: 88.6 kg

DRUGS (4)
  1. KETEK [Suspect]
     Indication: CYST REMOVAL
     Dosage: 800 MG/DAY
     Dates: start: 20050608, end: 20050608
  2. KETEK [Suspect]
     Indication: POSTOPERATIVE INFECTION
     Dosage: 800 MG/DAY
     Dates: start: 20050608, end: 20050608
  3. LATANOPROST (XALATAN) [Concomitant]
  4. VYTORIN [Concomitant]

REACTIONS (2)
  - DIZZINESS [None]
  - VISION BLURRED [None]
